FAERS Safety Report 9628797 (Version 1)
Quarter: 2013Q4

REPORT INFORMATION
  Report Type: Spontaneous
  Country: US (occurrence: US)
  Receive Date: 20131017
  Receipt Date: 20131017
  Transmission Date: 20140711
  Serious: Yes (Hospitalization)
  Sender: FDA-Public Use
  Company Number: US-B.I. PHARMACEUTICALS,INC./RIDGEFIELD-2013-BI-32473BP

PATIENT
  Age: 52 Year
  Sex: Female
  Weight: 68 kg

DRUGS (4)
  1. SPIRIVA [Suspect]
     Indication: CHRONIC OBSTRUCTIVE PULMONARY DISEASE
     Dosage: 18 MCG
     Route: 055
     Dates: start: 201308, end: 201309
  2. SPIRIVA [Suspect]
     Dosage: 36 MCG
     Route: 048
     Dates: start: 201309
  3. ATROVENT [Concomitant]
     Route: 055
  4. SYMBICORT [Concomitant]
     Dosage: STRENGTH: 160;
     Route: 055

REACTIONS (4)
  - Asthma [Recovered/Resolved]
  - Oedema [Unknown]
  - Drug administration error [Unknown]
  - Overdose [Unknown]
